FAERS Safety Report 12296778 (Version 3)
Quarter: 2016Q2

REPORT INFORMATION
  Report Type: Spontaneous
  Country: JP (occurrence: JP)
  Receive Date: 20160422
  Receipt Date: 20160525
  Transmission Date: 20160815
  Serious: Yes (Death)
  Sender: FDA-Public Use
  Company Number: JP-DSJP-DSJ-2016-109563

PATIENT

DRUGS (3)
  1. LIXIANA TABLETS 60MG [Suspect]
     Active Substance: EDOXABAN TOSILATE MONOHYDRATE
     Indication: ATRIAL FIBRILLATION
     Dosage: 15 MG, QD
     Route: 048
     Dates: start: 20160130, end: 20160305
  2. LANIRAPID [Concomitant]
     Active Substance: METILDIGOXIN
     Indication: ATRIAL FIBRILLATION
     Dosage: UNK
     Route: 048
     Dates: end: 20160309
  3. SUNRYTHM CAPSULES 50MG [Concomitant]
     Indication: ATRIAL FIBRILLATION
     Dosage: 50 MG, BID
     Route: 048

REACTIONS (3)
  - Underdose [Unknown]
  - Pancytopenia [Fatal]
  - Occult blood [Unknown]

NARRATIVE: CASE EVENT DATE: 20160205
